FAERS Safety Report 15716812 (Version 3)
Quarter: 2019Q1

REPORT INFORMATION
  Report Type: Spontaneous
  Country: FR (occurrence: FR)
  Receive Date: 20181213
  Receipt Date: 20190119
  Transmission Date: 20190417
  Serious: Yes (Life-Threatening, Hospitalization, Other)
  Sender: FDA-Public Use
  Company Number: FR-AUROBINDO-AUR-APL-2015-06779

PATIENT
  Age: 60 Year
  Sex: Male

DRUGS (3)
  1. ALPRAZOLAM. [Concomitant]
     Active Substance: ALPRAZOLAM
     Indication: ANXIETY
     Dosage: 0.25 MG, AS NECESSARY (PRN)
     Route: 065
  2. AMITRIPTYLIN [Concomitant]
     Active Substance: AMITRIPTYLINE
     Indication: DEPRESSION
     Dosage: 50 MILLIGRAM, ONCE A DAY
     Route: 065
  3. PARACETAMOL [Suspect]
     Active Substance: ACETAMINOPHEN
     Indication: INTUSSUSCEPTION
     Dosage: 64 GRAM, TOTAL
     Route: 065

REACTIONS (12)
  - Toxicity to various agents [Recovered/Resolved]
  - Aspartate aminotransferase increased [Unknown]
  - Analgesic drug level increased [Recovering/Resolving]
  - Drug level increased [Recovered/Resolved]
  - Lactic acidosis [Recovered/Resolved]
  - Agitation [Unknown]
  - Intentional overdose [Recovered/Resolved]
  - Coma [Recovered/Resolved]
  - Body temperature decreased [Recovered/Resolved]
  - Prothrombin time shortened [Unknown]
  - Vomiting [Recovered/Resolved]
  - Alanine aminotransferase increased [Unknown]
